FAERS Safety Report 5619434-2 (Version None)
Quarter: 2008Q1

REPORT INFORMATION
  Report Type: 
  Country: None (occurrence: None)
  Receive Date: 20080109
  Receipt Date: 20070405
  Transmission Date: 20080703
  Serious: Yes (Hospitalization, Other)
  Sender: FDA-Public Use
  Company Number: WAES 0704USA00902

PATIENT
  Age: 72 Year
  Sex: Female

DRUGS (4)
  1. ZETIA [Suspect]
     Dosage: 10 MG, PO
     Route: 048
     Dates: start: 20061201, end: 20070404
  2. CERELBREX [Concomitant]
  3. NEXIUM [Concomitant]
  4. VICODIN [Concomitant]

REACTIONS (1)
  - PANCREATITIS [None]
